FAERS Safety Report 14911284 (Version 1)
Quarter: 2018Q2

REPORT INFORMATION
  Report Type: Spontaneous
  Country: US (occurrence: US)
  Receive Date: 20180518
  Receipt Date: 20180518
  Transmission Date: 20180711
  Serious: No
  Sender: FDA-Public Use
  Company Number: US-009507513-1805USA002382

PATIENT
  Age: 41 Year
  Sex: Female
  Weight: 102.4 kg

DRUGS (1)
  1. NEXPLANON [Suspect]
     Active Substance: ETONOGESTREL
     Indication: HORMONE THERAPY
     Dosage: 3 YEAR IMPLANT; RIGHT ARM
     Route: 059
     Dates: start: 20180328

REACTIONS (3)
  - Implant site pain [Not Recovered/Not Resolved]
  - Product use in unapproved indication [Unknown]
  - Menorrhagia [Not Recovered/Not Resolved]

NARRATIVE: CASE EVENT DATE: 20180328
